FAERS Safety Report 4526584-0 (Version None)
Quarter: 2004Q4

REPORT INFORMATION
  Report Type: 
  Country: None (occurrence: None)
  Receive Date: 20041213
  Receipt Date: 20041209
  Transmission Date: 20050328
  Serious: Yes (Other)
  Sender: FDA-Public Use
  Company Number: 2004-BP-13017BP

PATIENT
  Age: 29 Year
  Sex: Female

DRUGS (3)
  1. VIRAMUNE [Suspect]
     Indication: HIV INFECTION
     Dosage: (200 MG) PO
     Route: 048
     Dates: start: 20040120, end: 20040120
  2. DIDANOSINE (DIDANOSINE) (NR) [Suspect]
     Indication: HIV INFECTION
  3. STAVUDINE (STAVUDINE) (NR) [Suspect]
     Indication: HIV INFECTION
     Dates: start: 20040120

REACTIONS (1)
  - LIPASE INCREASED [None]
